FAERS Safety Report 18244432 (Version 1)
Quarter: 2020Q3

REPORT INFORMATION
  Report Type: Spontaneous
  Country: US (occurrence: US)
  Receive Date: 20200908
  Receipt Date: 20200908
  Transmission Date: 20201103
  Serious: Yes (Death)
  Sender: FDA-Public Use
  Company Number: US-JNJFOC-A-NJ2020-208807

PATIENT
  Age: 77 Year
  Sex: Male

DRUGS (30)
  1. ALLOPURINOL. [Concomitant]
     Active Substance: ALLOPURINOL
     Route: 048
  2. ATORVASTATIN [Concomitant]
     Active Substance: ATORVASTATIN
     Route: 048
  3. BUPROPION. [Concomitant]
     Active Substance: BUPROPION
     Route: 048
  4. FINASTERIDE. [Concomitant]
     Active Substance: FINASTERIDE
     Route: 048
  5. BUDESONIDE W/FORMOTEROL [Concomitant]
     Active Substance: BUDESONIDE\FORMOTEROL
  6. IPRATROPIUM [Concomitant]
     Active Substance: IPRATROPIUM
  7. MAGNESIUM OXIDE. [Concomitant]
     Active Substance: MAGNESIUM OXIDE
     Route: 048
  8. INSULIN LISPRO [Concomitant]
     Active Substance: INSULIN LISPRO
     Dosage: 2?12 UNITS
     Route: 058
  9. D5NM [Concomitant]
  10. LOPERAMIDE [Concomitant]
     Active Substance: LOPERAMIDE
     Route: 048
  11. ONDANSETRON [Concomitant]
     Active Substance: ONDANSETRON
     Route: 048
  12. SILDENAFIL. [Concomitant]
     Active Substance: SILDENAFIL
     Indication: PULMONARY HYPERTENSION
     Route: 048
  13. ACETAMINOPHEN. [Concomitant]
     Active Substance: ACETAMINOPHEN
     Route: 048
  14. ASPRIN [Concomitant]
     Active Substance: ASPIRIN
     Route: 048
  15. ENOXAPARIN [Concomitant]
     Active Substance: ENOXAPARIN
     Route: 058
  16. DEXTROSE 10% [Concomitant]
     Active Substance: DEXTROSE
  17. PERFLUTREN [Concomitant]
     Active Substance: PERFLUTREN
     Dosage: ONCE PRN
     Route: 042
  18. AMBRISENTAN [Concomitant]
     Active Substance: AMBRISENTAN
     Route: 048
  19. ALTEPLASE. [Concomitant]
     Active Substance: ALTEPLASE
     Route: 042
  20. METOPROLOL. [Concomitant]
     Active Substance: METOPROLOL
     Dosage: PRN
     Route: 042
  21. VELETRI [Suspect]
     Active Substance: EPOPROSTENOL
     Indication: PULMONARY ARTERIAL HYPERTENSION
     Route: 042
     Dates: end: 20200821
  22. UPTRAVI [Suspect]
     Active Substance: SELEXIPAG
     Indication: PULMONARY ARTERIAL HYPERTENSION
     Dosage: UNK
     Route: 048
     Dates: start: 20190823, end: 20200721
  23. SENNOSIDE                          /00571902/ [Concomitant]
     Active Substance: SENNOSIDES A AND B
     Route: 048
  24. BISACODYL. [Concomitant]
     Active Substance: BISACODYL
     Route: 054
  25. PRIMIDONE. [Concomitant]
     Active Substance: PRIMIDONE
     Route: 048
  26. SODIUM CHLORIDE. [Concomitant]
     Active Substance: SODIUM CHLORIDE
     Dates: end: 20200820
  27. SODIUM CHLORIDE. [Concomitant]
     Active Substance: SODIUM CHLORIDE
  28. PROPANOLOL                         /00030001/ [Concomitant]
     Active Substance: PROPRANOLOL HYDROCHLORIDE
     Route: 048
  29. LACTULOSE. [Concomitant]
     Active Substance: LACTULOSE
     Dosage: PRN
     Route: 048
  30. LIDOCAINE. [Concomitant]
     Active Substance: LIDOCAINE
     Route: 023

REACTIONS (2)
  - Pulmonary hypertension [Fatal]
  - Respiratory failure [Fatal]
